FAERS Safety Report 8550194-1 (Version None)
Quarter: 2012Q3

REPORT INFORMATION
  Report Type: 
  Country: None (occurrence: None)
  Receive Date: 20120730
  Receipt Date: 20120717
  Transmission Date: 20120928
  Serious: Yes (Hospitalization)
  Sender: FDA-Public Use
  Company Number: US-ACTELION-A-NJ2012-69190

PATIENT
  Age: 65 Year
  Sex: Male

DRUGS (3)
  1. SILDENAFIL [Concomitant]
  2. LETAIRIS [Concomitant]
  3. EPOPROSTENOL SODIUM [Suspect]
     Indication: PULMONARY ARTERIAL HYPERTENSION
     Dosage: 24 NG/KG, PER MIN
     Route: 041
     Dates: start: 20120213

REACTIONS (2)
  - SCROTAL SWELLING [None]
  - SCROTAL INFECTION [None]
